FAERS Safety Report 8782792 (Version 1)
Quarter: 2012Q4

REPORT INFORMATION
  Report Type: 
  Country: US (occurrence: US)
  Receive Date: 20120913
  Receipt Date: 20120913
  Transmission Date: 20130627
  Serious: Yes (Death)
  Sender: FDA-Public Use
  Company Number: US-GLAXOSMITHKLINE-A0988135A

PATIENT
  Sex: Male

DRUGS (1)
  1. VOTRIENT [Suspect]
     Indication: HEAD AND NECK CANCER
     Dosage: 800MG per day
     Route: 065

REACTIONS (2)
  - Death [Fatal]
  - Malaise [Unknown]
